FAERS Safety Report 4344359-2 (Version None)
Quarter: 2004Q2

REPORT INFORMATION
  Report Type: 
  Country: None (occurrence: None)
  Receive Date: 20040420
  Receipt Date: 20040412
  Transmission Date: 20050107
  Serious: Yes (Hospitalization)
  Sender: FDA-Public Use
  Company Number: 2004208902CA

PATIENT
  Age: 43 Year
  Sex: Female

DRUGS (1)
  1. CYTOTEC [Suspect]
     Indication: UTERINE OPERATION
     Dosage: ORAL
     Route: 048
     Dates: start: 20040329, end: 20040330

REACTIONS (7)
  - CHILLS [None]
  - DIZZINESS [None]
  - FACIAL BONES FRACTURE [None]
  - FALL [None]
  - HYPERSENSITIVITY [None]
  - PELVIC PAIN [None]
  - PERIORBITAL HAEMATOMA [None]
